FAERS Safety Report 8939198 (Version 1)
Quarter: 2012Q4

REPORT INFORMATION
  Report Type: 
  Country: US (occurrence: US)
  Receive Date: 20121203
  Receipt Date: 20121203
  Transmission Date: 20130627
  Serious: No
  Sender: FDA-Public Use
  Company Number: US-PFIZER INC-2012299081

PATIENT
  Age: 73 Year
  Sex: Female

DRUGS (4)
  1. SUTENT [Suspect]
     Indication: PRIMITIVE NEUROECTODERMAL TUMOUR
     Dosage: 37.5 mg, 1x/day
     Dates: start: 201203
  2. SUTENT [Suspect]
     Dosage: 25 mg, 1x/day
     Route: 048
  3. ZOMETA [Concomitant]
     Dosage: UNK
  4. SANDOSTATIN [Concomitant]
     Dosage: UNK

REACTIONS (11)
  - Nausea [Unknown]
  - Vomiting [Unknown]
  - Headache [Unknown]
  - Stomatitis [Unknown]
  - Glossodynia [Unknown]
  - Dry skin [Unknown]
  - Weight decreased [Unknown]
  - Dysgeusia [Unknown]
  - Dry mouth [Unknown]
  - Decreased appetite [Unknown]
  - Alopecia [Unknown]
